FAERS Safety Report 23770744 (Version 2)
Quarter: 2024Q2

REPORT INFORMATION
  Report Type: Spontaneous
  Country: US (occurrence: US)
  Receive Date: 20240422
  Receipt Date: 20240516
  Transmission Date: 20240716
  Serious: No
  Sender: FDA-Public Use
  Company Number: US-JNJFOC-20240435104

PATIENT
  Age: 55 Year
  Sex: Female

DRUGS (6)
  1. TREMFYA [Suspect]
     Active Substance: GUSELKUMAB
     Indication: Product used for unknown indication
     Route: 065
  2. LITHIUM [Concomitant]
     Active Substance: LITHIUM
     Dosage: BIPLOAR
  3. SEROQUEL [Concomitant]
     Active Substance: QUETIAPINE FUMARATE
     Dosage: BIPOLAR
  4. ATIVAN [Concomitant]
     Active Substance: LORAZEPAM
  5. DEPLIN [LEVOMEFOLIC ACID] [Concomitant]
  6. COVID-19 VACCINE [Concomitant]

REACTIONS (3)
  - Surgery [Unknown]
  - Urinary tract infection [Unknown]
  - Off label use [Unknown]
